FAERS Safety Report 6259149-3 (Version None)
Quarter: 2009Q3

REPORT INFORMATION
  Report Type: 
  Country: None (occurrence: None)
  Receive Date: 20090702
  Receipt Date: 20090619
  Transmission Date: 20100115
  Serious: Yes (Other)
  Sender: FDA-Public Use
  Company Number: 2008AL012186

PATIENT
  Age: 62 Year
  Sex: Female

DRUGS (13)
  1. DIGOXIN [Suspect]
     Dosage: PO
     Route: 048
  2. LANTUS [Concomitant]
  3. NOVALOG [Concomitant]
  4. PROTONOX [Concomitant]
  5. FUROSEMIDE [Concomitant]
  6. SIMVASTATIN [Concomitant]
  7. AVAPRO [Concomitant]
  8. TOPROL-XL [Concomitant]
  9. NEURONTIN [Concomitant]
  10. ZYRTEC [Concomitant]
  11. ASPIRIN [Concomitant]
  12. XALATAN [Concomitant]
  13. PLAVIX [Concomitant]

REACTIONS (12)
  - ANXIETY [None]
  - DIZZINESS [None]
  - ECONOMIC PROBLEM [None]
  - HYPOTENSION [None]
  - INJURY [None]
  - MUSCULAR WEAKNESS [None]
  - NAUSEA [None]
  - PAIN [None]
  - PAIN IN EXTREMITY [None]
  - PARAESTHESIA [None]
  - UNEVALUABLE EVENT [None]
  - VOMITING [None]
